FAERS Safety Report 6605157-X (Version None)
Quarter: 2010Q1

REPORT INFORMATION
  Report Type: 
  Country: None (occurrence: None)
  Receive Date: 20100226
  Receipt Date: 20100219
  Transmission Date: 20100710
  Serious: Yes (Death)
  Sender: FDA-Public Use
  Company Number: JP-ELI_LILLY_AND_COMPANY-JP201002004027

PATIENT
  Age: 49 Year
  Sex: Male

DRUGS (4)
  1. HUMALOG [Suspect]
     Indication: TYPE 2 DIABETES MELLITUS
     Dosage: 17 U, DAILY (1/D)
     Route: 058
  2. HUMALOG [Suspect]
     Route: 058
     Dates: start: 20090223, end: 20090223
  3. HUMULIN N [Suspect]
     Indication: TYPE 2 DIABETES MELLITUS
     Dosage: 5 U, DAILY (1/D)
     Route: 058
  4. HUMULIN N [Suspect]
     Route: 058
     Dates: start: 20090223, end: 20090223

REACTIONS (6)
  - BRAIN OEDEMA [None]
  - CARDIO-RESPIRATORY ARREST [None]
  - COMPLETED SUICIDE [None]
  - HYPOGLYCAEMIA [None]
  - HYPOXIC ENCEPHALOPATHY [None]
  - INTENTIONAL OVERDOSE [None]
